FAERS Safety Report 4501127-6 (Version None)
Quarter: 2004Q4

REPORT INFORMATION
  Report Type: 
  Country: None (occurrence: None)
  Receive Date: 20041109
  Receipt Date: 20041026
  Transmission Date: 20050328
  Serious: Yes (Death, Other)
  Sender: FDA-Public Use
  Company Number: USA030639469

PATIENT
  Age: 74 Year
  Sex: Female
  Weight: 60 kg

DRUGS (4)
  1. EVISTA [Suspect]
     Indication: BREAST CANCER
     Dates: start: 20020901, end: 20030601
  2. EVISTA [Suspect]
     Indication: PROPHYLAXIS
     Dates: start: 20020901, end: 20030601
  3. TAMOXIFEN CITRATE [Concomitant]
  4. GLUCOSAMINE [Concomitant]

REACTIONS (5)
  - BREAST CANCER RECURRENT [None]
  - CEREBROVASCULAR ACCIDENT [None]
  - HEPATIC NEOPLASM MALIGNANT [None]
  - LUNG NEOPLASM MALIGNANT [None]
  - SPINAL CORD NEOPLASM [None]
